FAERS Safety Report 9252651 (Version 1)
Quarter: 2013Q1

REPORT INFORMATION
  Report Type: Spontaneous
  Country: US (occurrence: None)
  Receive Date: 20130305
  Receipt Date: 20130305
  Transmission Date: 20140127
  Serious: Yes (Hospitalization, Other)
  Sender: FDA-Public Use
  Company Number: 163-21880-12082096

PATIENT
  Age: 77 Year
  Sex: Male

DRUGS (2)
  1. REVLIMID [Suspect]
     Indication: PLASMA CELL MYELOMA
     Route: 048
     Dates: start: 201207
  2. COUMADIN (WARFARIN SODIUM) [Concomitant]

REACTIONS (5)
  - Erythema [None]
  - Fatigue [None]
  - Pain in extremity [None]
  - Dyspnoea [None]
  - Oedema peripheral [None]
